FAERS Safety Report 26025865 (Version 1)
Quarter: 2025Q4

REPORT INFORMATION
  Report Type: Spontaneous
  Country: EU (occurrence: EU)
  Receive Date: 20251111
  Receipt Date: 20251111
  Transmission Date: 20260118
  Serious: Yes (Other)
  Sender: BAYER HEALTHCARE PHARMACEUTICALS INC.
  Company Number: None

PATIENT
  Age: 37 Year
  Sex: Female
  Weight: 64 kg

DRUGS (1)
  1. KYLEENA [Suspect]
     Active Substance: LEVONORGESTREL
     Indication: Heavy menstrual bleeding
     Dosage: 17.5?G/DAY
     Route: 015
     Dates: start: 20240708, end: 20240803

REACTIONS (5)
  - Heavy menstrual bleeding [Not Recovered/Not Resolved]
  - Uterine pain [Recovering/Resolving]
  - Limb discomfort [Recovering/Resolving]
  - Feeling of body temperature change [Recovering/Resolving]
  - Device expulsion [Recovered/Resolved]

NARRATIVE: CASE EVENT DATE: 20240710
